FAERS Safety Report 23772794 (Version 1)
Quarter: 2024Q2

REPORT INFORMATION
  Report Type: Spontaneous
  Country: US (occurrence: None)
  Receive Date: 20240422
  Receipt Date: 20240422
  Transmission Date: 20240715
  Serious: No
  Sender: FDA-Public Use
  Company Number: None

PATIENT
  Age: 41 Year
  Sex: Female
  Weight: 46.5 kg

DRUGS (4)
  1. EPCLUSA [Suspect]
     Active Substance: SOFOSBUVIR\VELPATASVIR
     Indication: Hepatitis C
     Dosage: OTHER QUANTITY : 400-100;?FREQUENCY : DAILY;?
     Route: 048
     Dates: start: 20240115
  2. EPCLUSA [Concomitant]
     Active Substance: SOFOSBUVIR\VELPATASVIR
  3. OMEPRAZOLE [Concomitant]
  4. SEROQUEL [Concomitant]

REACTIONS (4)
  - Rash [None]
  - Blister [None]
  - Systemic lupus erythematosus [None]
  - Autoimmune disorder [None]

NARRATIVE: CASE EVENT DATE: 20240322
